FAERS Safety Report 7201423-8 (Version None)
Quarter: 2010Q4

REPORT INFORMATION
  Report Type: 
  Country: None (occurrence: None)
  Receive Date: 20101215
  Receipt Date: 20101207
  Transmission Date: 20110411
  Serious: Yes (Hospitalization, Disabling, Other)
  Sender: FDA-Public Use
  Company Number: 2010SP002792

PATIENT
  Age: 27 Year
  Sex: Female
  Weight: 72.5755 kg

DRUGS (4)
  1. NUVARING [Suspect]
     Indication: CONTRACEPTION
     Dates: start: 20060101, end: 20080501
  2. TOPAMAX [Suspect]
     Indication: MIGRAINE
     Dates: end: 20060801
  3. STEROIDS [Concomitant]
  4. MULTI-VITAMINS [Concomitant]

REACTIONS (43)
  - ABDOMINAL PAIN [None]
  - AFFECTIVE DISORDER [None]
  - ANGER [None]
  - ANXIETY [None]
  - BACK INJURY [None]
  - BARTHOLIN'S CYST [None]
  - BIPOLAR DISORDER [None]
  - BLINDNESS [None]
  - CEREBROVASCULAR ACCIDENT [None]
  - CLAUSTROPHOBIA [None]
  - DEPRESSION [None]
  - DIZZINESS [None]
  - ECONOMIC PROBLEM [None]
  - FOLLICULITIS [None]
  - GALACTORRHOEA [None]
  - GASTROOESOPHAGEAL REFLUX DISEASE [None]
  - GENITAL DISCHARGE [None]
  - HAEMATURIA [None]
  - HYPERCOAGULATION [None]
  - HYPERTENSION [None]
  - INSOMNIA [None]
  - INTRACRANIAL VENOUS SINUS THROMBOSIS [None]
  - IRRITABILITY [None]
  - LACTATION DISORDER [None]
  - LOCAL SWELLING [None]
  - LOW DENSITY LIPOPROTEIN INCREASED [None]
  - MENTAL DISORDER [None]
  - MIGRAINE [None]
  - MUSCLE SPASMS [None]
  - OVARIAN CYST [None]
  - PANIC ATTACK [None]
  - PARALYSIS [None]
  - PHARYNGITIS [None]
  - PHOTOPHOBIA [None]
  - PROTEIN S DECREASED [None]
  - ROAD TRAFFIC ACCIDENT [None]
  - SINUSITIS [None]
  - SKIN PAPILLOMA [None]
  - SUBARACHNOID HAEMORRHAGE [None]
  - SYNCOPE [None]
  - VITH NERVE PARALYSIS [None]
  - VULVOVAGINAL DISCOMFORT [None]
  - WEIGHT INCREASED [None]
